FAERS Safety Report 16235548 (Version 1)
Quarter: 2019Q2

REPORT INFORMATION
  Report Type: Spontaneous
  Country: FR (occurrence: FR)
  Receive Date: 20190424
  Receipt Date: 20190424
  Transmission Date: 20190711
  Serious: Yes (Death)
  Sender: FDA-Public Use
  Company Number: FR-ALLERGAN-1917344US

PATIENT
  Sex: Male
  Weight: 71.4 kg

DRUGS (7)
  1. TERBUTALINE [Suspect]
     Active Substance: TERBUTALINE
     Indication: RESPIRATORY DISORDER
     Dosage: UNK
     Route: 055
     Dates: start: 20190327, end: 20190404
  2. NORMACOL [Suspect]
     Active Substance: HERBALS\KARAYA GUM
     Indication: CONSTIPATION
     Dosage: 1 DF, Q WEEK
     Route: 054
  3. SCOPODERM [Suspect]
     Active Substance: SCOPOLAMINE
     Indication: RESPIRATORY DISORDER
     Dosage: 1 DF, EVERY 72 HOURS
     Route: 062
     Dates: start: 20190326, end: 20190408
  4. BACLOFENE [Suspect]
     Active Substance: BACLOFEN
     Indication: SUPRANUCLEAR PALSY
     Dosage: 40 MG, DAILY
     Route: 048
     Dates: end: 20190408
  5. ZOPICLONE [Suspect]
     Active Substance: ZOPICLONE
     Indication: INSOMNIA
     Dosage: 7.5 MG, DAILY
     Route: 048
     Dates: end: 20190404
  6. SILODOSIN - BP [Suspect]
     Active Substance: SILODOSIN
     Indication: BENIGN PROSTATIC HYPERPLASIA
     Dosage: 8 MG, DAILY
     Route: 048
     Dates: end: 20190404
  7. INNOVAIR [Suspect]
     Active Substance: BECLOMETHASONE DIPROPIONATE\FORMOTEROL
     Indication: RESPIRATORY DISORDER
     Dosage: UNK
     Route: 055
     Dates: start: 20190327, end: 20190404

REACTIONS (2)
  - Respiratory distress [Fatal]
  - Pneumonia aspiration [Fatal]

NARRATIVE: CASE EVENT DATE: 20190404
